FAERS Safety Report 12765691 (Version 1)
Quarter: 2016Q3

REPORT INFORMATION
  Report Type: Spontaneous
  Country: US (occurrence: US)
  Receive Date: 20160915
  Receipt Date: 20160915
  Transmission Date: 20161109
  Serious: No
  Sender: FDA-Public Use
  Company Number: None

PATIENT
  Age: 65 Year
  Sex: Female

DRUGS (1)
  1. REPATHA [Suspect]
     Active Substance: EVOLOCUMAB
     Route: 058
     Dates: start: 20160611, end: 20160724

REACTIONS (5)
  - Therapy cessation [None]
  - Gastrooesophageal reflux disease [None]
  - Asthenia [None]
  - Diarrhoea [None]
  - Neuralgia [None]

NARRATIVE: CASE EVENT DATE: 20160612
